FAERS Safety Report 5292705-8 (Version None)
Quarter: 2007Q2

REPORT INFORMATION
  Report Type: 
  Country: None (occurrence: None)
  Receive Date: 20070404
  Receipt Date: 20070319
  Transmission Date: 20071010
  Serious: Yes (Life-Threatening, Disabling)
  Sender: FDA-Public Use
  Company Number: DSA_29609_2007

PATIENT
  Age: 61 Year
  Sex: Female
  Weight: 70.3075 kg

DRUGS (5)
  1. ATIVAN [Suspect]
     Indication: ANXIETY
     Dosage: 1 MG TID PO
     Route: 048
     Dates: end: 20070318
  2. ATIVAN [Suspect]
     Indication: CARDIAC DISORDER
     Dosage: 1 MG TID PO
     Route: 048
     Dates: end: 20070318
  3. ATIVAN [Suspect]
     Indication: ANXIETY
     Dosage: 1 MG TID PO
     Route: 048
  4. ATIVAN [Suspect]
     Indication: CARDIAC DISORDER
     Dosage: 1 MG TID PO
     Route: 048
  5. TOPROL-XL [Concomitant]

REACTIONS (19)
  - ASTHENIA [None]
  - CHEST DISCOMFORT [None]
  - CONSTIPATION [None]
  - DRUG HYPERSENSITIVITY [None]
  - DRUG INEFFECTIVE [None]
  - DRY MOUTH [None]
  - DYSPNOEA [None]
  - FATIGUE [None]
  - HALLUCINATION [None]
  - HEART RATE INCREASED [None]
  - HYPERHIDROSIS [None]
  - INSOMNIA [None]
  - MEMORY IMPAIRMENT [None]
  - MUSCLE SPASMS [None]
  - PAIN [None]
  - PHARMACEUTICAL PRODUCT COMPLAINT [None]
  - PRURITUS [None]
  - RASH [None]
  - THIRST [None]
